FAERS Safety Report 15290585 (Version 1)
Quarter: 2018Q3

REPORT INFORMATION
  Report Type: Spontaneous
  Country: US (occurrence: US)
  Receive Date: 20180805
  Receipt Date: 20180805
  Transmission Date: 20181010
  Serious: Yes (Hospitalization)
  Sender: FDA-Public Use
  Company Number: None

PATIENT
  Age: 67 Year
  Sex: Male
  Weight: 86 kg

DRUGS (1)
  1. MINOXIDIL. [Suspect]
     Active Substance: MINOXIDIL
     Indication: HYPERTENSION
     Route: 048
     Dates: start: 20180323, end: 20180615

REACTIONS (9)
  - Atrial flutter [None]
  - Palpitations [None]
  - Asthenia [None]
  - Dyspnoea [None]
  - Dizziness [None]
  - Atrial fibrillation [None]
  - Pericardial effusion [None]
  - Pyrexia [None]
  - Pericarditis [None]
